FAERS Safety Report 19846550 (Version 2)
Quarter: 2021Q4

REPORT INFORMATION
  Report Type: Report from Study
  Country: US (occurrence: US)
  Receive Date: 20210917
  Receipt Date: 20211112
  Transmission Date: 20220303
  Serious: Yes (Hospitalization, Other)
  Sender: FDA-Public Use
  Company Number: US-ASTELLAS-2021US030006

PATIENT
  Age: 85 Year
  Sex: Male

DRUGS (19)
  1. ENZALUTAMIDE [Suspect]
     Active Substance: ENZALUTAMIDE
     Indication: Hormone-refractory prostate cancer
     Dosage: 160 MG, ONCE DAILY IN EVENING
     Route: 048
     Dates: start: 20200506
  2. FLOMAX [Concomitant]
     Active Substance: TAMSULOSIN HYDROCHLORIDE
     Indication: Neoplasm malignant
     Dosage: 4 MG, ONCE DAILY IN EVENING
     Route: 065
     Dates: start: 2020
  3. SYNTHROID [Concomitant]
     Active Substance: LEVOTHYROXINE SODIUM
     Indication: Product used for unknown indication
     Dosage: 88 ?G, ONCE DAILY IN AM
     Route: 065
     Dates: start: 20140701
  4. FINASTERIDE [Concomitant]
     Active Substance: FINASTERIDE
     Indication: Neoplasm malignant
     Dosage: 5 MG, ONCE DAILY IN AM
     Route: 065
     Dates: start: 2020, end: 20210806
  5. ALFUZOSIN [Concomitant]
     Active Substance: ALFUZOSIN
     Indication: Product used for unknown indication
     Route: 065
     Dates: start: 2020
  6. MELATONIN [Concomitant]
     Active Substance: MELATONIN
     Indication: Product used for unknown indication
     Dosage: UNK UNK, AS NEEDED BED TIME OCCASSIONAL
     Route: 065
     Dates: start: 2020
  7. ALPRAZOLAM [Concomitant]
     Active Substance: ALPRAZOLAM
     Indication: Anxiety
     Dosage: 0.25 MG, 1 OR 2 DAY AS NEEDED
     Route: 065
     Dates: start: 20200720
  8. PLAVIX [Concomitant]
     Active Substance: CLOPIDOGREL BISULFATE
     Indication: Cardiac disorder
     Dosage: 75 MG, ONCE DAILY IN AM
     Route: 065
     Dates: start: 20210805
  9. LIPITOR [Concomitant]
     Active Substance: ATORVASTATIN CALCIUM
     Indication: Blood cholesterol
     Dosage: 40 MG, ONCE DAILY IN EVENING
     Route: 065
     Dates: start: 20210805
  10. LISINOPRIL [Concomitant]
     Active Substance: LISINOPRIL
     Indication: Product used for unknown indication
     Dosage: 5 MG, (1/2 DAY) DAILY IN PM
     Route: 065
     Dates: start: 20210805
  11. METOPROLOL [Concomitant]
     Active Substance: METOPROLOL
     Indication: Blood pressure abnormal
     Dosage: 1/2 OF 25 MG, ONCE DAILY AM
     Route: 065
     Dates: start: 20210805
  12. MEGESTROL [Concomitant]
     Active Substance: MEGESTROL
     Indication: Hot flush
     Dosage: 40 MG 1OR 2/ DAY, ONCE DAILY IN AM
     Route: 065
     Dates: start: 20210317, end: 20210825
  13. ASPIRIN [Concomitant]
     Active Substance: ASPIRIN
     Indication: Cardiac disorder
     Dosage: 81 MG, ONCE DAILY IN AM (10 YEARS)
     Route: 065
  14. DOCUSATE SODIUM [Concomitant]
     Active Substance: DOCUSATE SODIUM
     Indication: Abnormal faeces
     Dosage: 100 MG, ONCE DAILY IN AM (10+ YEARS)
     Route: 065
  15. VITAMIN D [Concomitant]
     Active Substance: VITAMIN D NOS
     Indication: Product used for unknown indication
     Dosage: 1000 IU, ONCE DAILY IN AM (10 + YEARS)
     Route: 065
  16. BENEFIBER [Concomitant]
     Active Substance: STARCH, WHEAT
     Indication: Product used for unknown indication
     Dosage: 2 TABSP 4 G, ONCE DAILY IN AM (YEAR)
     Route: 065
  17. MECLIZINE [Concomitant]
     Active Substance: MECLIZINE HYDROCHLORIDE
     Indication: Product used for unknown indication
     Dosage: UNK UNK, RARELY AS NEEDED (15 YEARS)
     Route: 065
  18. DRAMAMINE [Concomitant]
     Active Substance: DIMENHYDRINATE
     Indication: Product used for unknown indication
     Dosage: UNK UNK, RARELY AS NEEDED (15 YEARS)
     Route: 065
  19. BICALUTAMIDE [Concomitant]
     Active Substance: BICALUTAMIDE
     Indication: Product used for unknown indication
     Dosage: UNK UNK, UNKNOWN FREQ.
     Route: 065

REACTIONS (4)
  - Coronary artery occlusion [Recovered/Resolved]
  - Myocardial infarction [Recovered/Resolved]
  - Myocardial infarction [Recovered/Resolved]
  - Impaired work ability [Not Recovered/Not Resolved]

NARRATIVE: CASE EVENT DATE: 20210805
